FAERS Safety Report 14600055 (Version 2)
Quarter: 2018Q2

REPORT INFORMATION
  Report Type: Spontaneous
  Country: DE (occurrence: DE)
  Receive Date: 20180305
  Receipt Date: 20180406
  Transmission Date: 20180711
  Serious: Yes (Other)
  Sender: FDA-Public Use
  Company Number: DE-009507513-1803DEU001252

PATIENT
  Sex: Female

DRUGS (2)
  1. MODAFINIL. [Interacting]
     Active Substance: MODAFINIL
     Indication: NARCOLEPSY
     Dosage: UNK
  2. CIRCLET [Suspect]
     Active Substance: ETHINYL ESTRADIOL\ETONOGESTREL
     Indication: CONTRACEPTION
     Dosage: UNK
     Route: 067

REACTIONS (3)
  - Drug interaction [Unknown]
  - Narcolepsy [Unknown]
  - Drug effect decreased [Unknown]
